FAERS Safety Report 12603361 (Version 1)
Quarter: 2016Q3

REPORT INFORMATION
  Report Type: Report from Study
  Country: US (occurrence: US)
  Receive Date: 20160728
  Receipt Date: 20160728
  Transmission Date: 20161109
  Serious: No
  Sender: FDA-Public Use
  Company Number: PHEH2016US018412

PATIENT
  Age: 66 Year
  Sex: Male

DRUGS (1)
  1. COSENTYX [Suspect]
     Active Substance: SECUKINUMAB
     Indication: ANKYLOSING SPONDYLITIS
     Dosage: 300 MG, QMO
     Route: 065
     Dates: start: 20151201

REACTIONS (4)
  - Pain [Recovering/Resolving]
  - Incorrect dose administered [Unknown]
  - Product use issue [Unknown]
  - Migraine [Unknown]

NARRATIVE: CASE EVENT DATE: 20151201
